FAERS Safety Report 24430507 (Version 2)
Quarter: 2024Q4

REPORT INFORMATION
  Report Type: Spontaneous
  Country: GB (occurrence: GB)
  Receive Date: 20241013
  Receipt Date: 20241023
  Transmission Date: 20250115
  Serious: Yes (Hospitalization, Disabling, Other)
  Sender: ADVANZ PHARMA
  Company Number: GB-MLMSERVICE-20240928-PI201627-00306-2

PATIENT

DRUGS (5)
  1. PREDNISOLONE [Suspect]
     Active Substance: PREDNISOLONE
     Indication: Immunosuppressant drug therapy
     Dosage: 2 MG (LOW-DOSE)
  2. TACROLIMUS [Suspect]
     Active Substance: TACROLIMUS
     Indication: Immunosuppressant drug therapy
     Dosage: 1 MG, BID (INCREASED TO 1MG BD)
  3. TACROLIMUS [Suspect]
     Active Substance: TACROLIMUS
     Dosage: UNK
  4. TACROLIMUS [Suspect]
     Active Substance: TACROLIMUS
     Dosage: 0.5 MG, BID (INCREASED TO 0.5MG BD)
  5. TACROLIMUS [Suspect]
     Active Substance: TACROLIMUS
     Dosage: 0.5 MG, Q4D ((ADJUSTED TO 0.5MG EVERY 4 DAY))

REACTIONS (9)
  - Traumatic fracture [Recovering/Resolving]
  - Hand fracture [Recovering/Resolving]
  - Hand fracture [Recovering/Resolving]
  - Abscess limb [Recovering/Resolving]
  - Localised infection [Recovering/Resolving]
  - Mycobacterium chelonae infection [Recovering/Resolving]
  - Osteopenia [Recovering/Resolving]
  - Abscess bacterial [Recovering/Resolving]
  - Skin bacterial infection [Recovering/Resolving]
